FAERS Safety Report 11092633 (Version 4)
Quarter: 2017Q2

REPORT INFORMATION
  Report Type: Report from Study
  Country: BE (occurrence: BE)
  Receive Date: 20150506
  Receipt Date: 20170411
  Transmission Date: 20170829
  Serious: Yes (Hospitalization)
  Sender: FDA-Public Use
  Company Number: BE-TEVA-560450USA

PATIENT
  Age: 73 Year
  Sex: Female

DRUGS (45)
  1. TREANDA [Suspect]
     Active Substance: BENDAMUSTINE HYDROCHLORIDE
     Indication: CHRONIC LYMPHOCYTIC LEUKAEMIA
     Dosage: 70 MG/M2, CYCLIC (DAY 1-2 OF EACH CYCLE)
     Route: 042
     Dates: start: 20150302, end: 20150302
  2. DAFALGAN [Concomitant]
     Active Substance: ACETAMINOPHEN
     Dosage: 1 G, SINGLE DOSE
     Route: 048
     Dates: start: 20150617, end: 20150617
  3. DAFALGAN [Concomitant]
     Active Substance: ACETAMINOPHEN
     Dosage: 1 G, SINGLE DOSE
     Route: 048
     Dates: start: 20150715, end: 20150715
  4. CETIRIZINE [Concomitant]
     Active Substance: CETIRIZINE HYDROCHLORIDE
     Dosage: 10 MG, SINGLE DOSE
     Route: 048
     Dates: start: 20150715, end: 20150715
  5. LITICAN                            /00690801/ [Concomitant]
     Active Substance: ALIZAPRIDE
     Route: 042
     Dates: start: 20150520, end: 20150521
  6. TREANDA [Suspect]
     Active Substance: BENDAMUSTINE HYDROCHLORIDE
     Dosage: 70 MG/M2, CYCLIC (DAY 1-2 OF EACH CYCLE)
     Route: 042
     Dates: start: 20150303, end: 20150303
  7. OBINUTUZUMAB [Suspect]
     Active Substance: OBINUTUZUMAB
     Indication: CHRONIC LYMPHOCYTIC LEUKAEMIA
     Dosage: 100 MG, DAY 1, 2, 8 , 15 OF FIRST CYCLE
     Route: 042
     Dates: start: 20150302, end: 20150302
  8. SOLU-MEDROL [Concomitant]
     Active Substance: METHYLPREDNISOLONE SODIUM SUCCINATE
     Indication: PROPHYLAXIS
     Route: 042
     Dates: start: 20150302, end: 20150303
  9. DAFALGAN [Concomitant]
     Active Substance: ACETAMINOPHEN
     Dosage: 1 G, SINGLE DOSE
     Route: 048
     Dates: start: 20150323, end: 20150323
  10. OBINUTUZUMAB [Suspect]
     Active Substance: OBINUTUZUMAB
     Dosage: 900 MG, DAY 1, 2, 8 , 15 OF FIRST CYCLE
     Route: 042
     Dates: start: 20150303, end: 20150303
  11. CETIRIZINE [Concomitant]
     Active Substance: CETIRIZINE HYDROCHLORIDE
     Dosage: 10 MG, SINGLE DOSE
     Route: 048
     Dates: start: 20150415, end: 20150415
  12. CETIRIZINE [Concomitant]
     Active Substance: CETIRIZINE HYDROCHLORIDE
     Dosage: 10 MG, SINGLE DOSE
     Route: 048
     Dates: start: 20150617, end: 20150617
  13. LITICAN                            /00690801/ [Concomitant]
     Active Substance: ALIZAPRIDE
     Route: 042
     Dates: start: 20150302, end: 20150303
  14. ZYLORIC [Concomitant]
     Active Substance: ALLOPURINOL
     Indication: PROPHYLAXIS
     Route: 048
     Dates: start: 20150227
  15. ENTEROL                            /00838001/ [Concomitant]
     Indication: PRODUCT USED FOR UNKNOWN INDICATION
     Route: 048
     Dates: start: 201503
  16. NORIT [Concomitant]
     Indication: PRODUCT USED FOR UNKNOWN INDICATION
     Route: 048
     Dates: start: 201503
  17. TREANDA [Suspect]
     Active Substance: BENDAMUSTINE HYDROCHLORIDE
     Dosage: 70 MG/M2, CYCLIC (DAY 1-2 OF EACH CYCLE)
     Route: 042
     Dates: start: 20150416, end: 20150416
  18. SOLU-MEDROL [Concomitant]
     Active Substance: METHYLPREDNISOLONE SODIUM SUCCINATE
     Dosage: 40 MG, SINGLE DOSE
     Route: 042
     Dates: start: 20150316, end: 20150316
  19. SOLU-MEDROL [Concomitant]
     Active Substance: METHYLPREDNISOLONE SODIUM SUCCINATE
     Dosage: 40 MG, SINGLE DOSE
     Route: 042
     Dates: start: 20150617, end: 20150617
  20. DAFALGAN [Concomitant]
     Active Substance: ACETAMINOPHEN
     Indication: PROPHYLAXIS
     Dosage: UNK UNK, SINGLE DOSE
     Route: 048
     Dates: start: 20150301, end: 20150301
  21. DAFALGAN [Concomitant]
     Active Substance: ACETAMINOPHEN
     Dosage: 1 G, SINGLE DOSE
     Route: 048
     Dates: start: 20150520, end: 20150520
  22. CETIRIZINE [Concomitant]
     Active Substance: CETIRIZINE HYDROCHLORIDE
     Indication: PROPHYLAXIS
     Route: 048
     Dates: start: 20150302, end: 20150303
  23. CETIRIZINE [Concomitant]
     Active Substance: CETIRIZINE HYDROCHLORIDE
     Dosage: 10 MG, SINGLE DOSE
     Route: 048
     Dates: start: 20150520, end: 20150520
  24. ALLOPURINOL. [Concomitant]
     Active Substance: ALLOPURINOL
     Indication: PROPHYLAXIS
     Route: 048
     Dates: start: 20150227
  25. SOLU-MEDROL [Concomitant]
     Active Substance: METHYLPREDNISOLONE SODIUM SUCCINATE
     Dosage: 40 MG, SINGLE DOSE
     Route: 042
     Dates: start: 20150323, end: 20150323
  26. SOLU-MEDROL [Concomitant]
     Active Substance: METHYLPREDNISOLONE SODIUM SUCCINATE
     Dosage: 40 MG, SINGLE DOSE
     Route: 042
     Dates: start: 20150819, end: 20150819
  27. DAFALGAN [Concomitant]
     Active Substance: ACETAMINOPHEN
     Route: 048
     Dates: start: 20150302, end: 20150303
  28. LITICAN                            /00690801/ [Concomitant]
     Active Substance: ALIZAPRIDE
     Route: 042
     Dates: start: 20150415, end: 20150416
  29. LITICAN                            /00690801/ [Concomitant]
     Active Substance: ALIZAPRIDE
     Route: 042
     Dates: start: 20150617, end: 20150618
  30. SOLU-MEDROL [Concomitant]
     Active Substance: METHYLPREDNISOLONE SODIUM SUCCINATE
     Dosage: 40 MG, SINGLE DOSE
     Route: 042
     Dates: start: 20150415, end: 20150415
  31. SOLU-MEDROL [Concomitant]
     Active Substance: METHYLPREDNISOLONE SODIUM SUCCINATE
     Route: 042
     Dates: start: 20150520, end: 20150521
  32. DAFALGAN [Concomitant]
     Active Substance: ACETAMINOPHEN
     Dosage: 1 G, SINGLE DOSE
     Route: 048
     Dates: start: 20150415, end: 20150415
  33. DAFALGAN [Concomitant]
     Active Substance: ACETAMINOPHEN
     Dosage: 1 G, SINGLE DOSE
     Route: 048
     Dates: start: 20150819, end: 20150819
  34. CETIRIZINE [Concomitant]
     Active Substance: CETIRIZINE HYDROCHLORIDE
     Dosage: 10 MG, SINGLE DOSE
     Route: 048
     Dates: start: 20150819, end: 20150819
  35. LITICAN                            /00690801/ [Concomitant]
     Active Substance: ALIZAPRIDE
     Indication: PROPHYLAXIS
     Dosage: 50 MG, SINGLE DOSE
     Route: 042
     Dates: start: 20150302, end: 20150302
  36. OBINUTUZUMAB [Suspect]
     Active Substance: OBINUTUZUMAB
     Dosage: 1000 MG, DAY 1, 2, 8 , 15 OF FIRST CYCLE
     Route: 042
     Dates: start: 20150316, end: 20150316
  37. OBINUTUZUMAB [Suspect]
     Active Substance: OBINUTUZUMAB
     Dosage: 1000 MG, DAY 1 OF SUBSEQUENT 28 DAY CYCLE
     Route: 042
     Dates: start: 20150415, end: 20150415
  38. SOLU-MEDROL [Concomitant]
     Active Substance: METHYLPREDNISOLONE SODIUM SUCCINATE
     Dosage: 40 MG, SINGLE DOSE
     Route: 042
     Dates: start: 20150302, end: 20150302
  39. SOLU-MEDROL [Concomitant]
     Active Substance: METHYLPREDNISOLONE SODIUM SUCCINATE
     Dosage: 40 MG, SINGLE DOSE
     Route: 042
     Dates: start: 20150715, end: 20150715
  40. DAFALGAN [Concomitant]
     Active Substance: ACETAMINOPHEN
     Dosage: 1 G, SINGLE DOSE
     Route: 048
     Dates: start: 20150316, end: 20150316
  41. DAFALGAN [Concomitant]
     Active Substance: ACETAMINOPHEN
     Route: 048
     Dates: start: 20150422, end: 20150423
  42. LITICAN                            /00690801/ [Concomitant]
     Active Substance: ALIZAPRIDE
     Route: 042
     Dates: start: 20150819, end: 20150820
  43. OBINUTUZUMAB [Suspect]
     Active Substance: OBINUTUZUMAB
     Dosage: 1000 MG, DAY 1, 2, 8 , 15 OF FIRST CYCLE
     Route: 042
     Dates: start: 20150323, end: 20150323
  44. LITICAN                            /00690801/ [Concomitant]
     Active Substance: ALIZAPRIDE
     Route: 048
     Dates: start: 20150304
  45. LITICAN                            /00690801/ [Concomitant]
     Active Substance: ALIZAPRIDE
     Route: 042
     Dates: start: 20150715, end: 20150716

REACTIONS (1)
  - Myringitis [Recovered/Resolved]

NARRATIVE: CASE EVENT DATE: 20150421
